FAERS Safety Report 6425288-7 (Version None)
Quarter: 2009Q4

REPORT INFORMATION
  Report Type: 
  Country: None (occurrence: None)
  Receive Date: 20091102
  Receipt Date: 20091102
  Transmission Date: 20100525
  Serious: Yes (Other)
  Sender: FDA-Public Use
  Company Number: None

PATIENT
  Age: 52 Year
  Sex: Female
  Weight: 111.1313 kg

DRUGS (1)
  1. KAPIDEX [Suspect]
     Indication: GASTROOESOPHAGEAL REFLUX DISEASE
     Dosage: 30 MG -1 CAPSULE- PO
     Route: 048
     Dates: start: 20091002, end: 20091028

REACTIONS (2)
  - PRURITUS [None]
  - URTICARIA [None]
